FAERS Safety Report 8322457-6 (Version None)
Quarter: 2012Q2

REPORT INFORMATION
  Report Type: 
  Country: None (occurrence: None)
  Receive Date: 20120430
  Receipt Date: 20120423
  Transmission Date: 20120825
  Serious: Yes (Other)
  Sender: FDA-Public Use
  Company Number: US-FRI-1000029188

PATIENT
  Age: 66 Year
  Sex: Female

DRUGS (12)
  1. EVISTA [Concomitant]
  2. TRAZODONE HCL [Concomitant]
  3. VIIBRYD [Suspect]
     Dosage: 20 MG
     Dates: start: 20120316, end: 20120301
  4. ROPINIROLE [Concomitant]
     Indication: MUSCLE SPASMS
     Dosage: 25 MG
     Route: 048
  5. ZETIA [Concomitant]
     Indication: BLOOD CHOLESTEROL INCREASED
     Dosage: 10 MG
     Route: 048
  6. SYNTHROID [Concomitant]
     Indication: HYPOTHYROIDISM
  7. VIIBRYD [Suspect]
     Indication: DEPRESSION
     Dosage: 20 MG
     Route: 048
     Dates: start: 20120315, end: 20120315
  8. CLONAZEPAM [Concomitant]
     Dosage: 3 MG
     Route: 048
  9. BUSPAR [Concomitant]
     Dosage: 5 MG
     Route: 048
  10. MIRTAZAPINE [Concomitant]
     Dosage: 15 MG
     Route: 048
  11. INSULIN [Concomitant]
     Indication: DIABETES MELLITUS
  12. HYDROXYZINE [Concomitant]
     Dosage: 25 MG
     Route: 048

REACTIONS (5)
  - FATIGUE [None]
  - VOMITING [None]
  - BLOOD GLUCOSE INCREASED [None]
  - DIARRHOEA [None]
  - ERYTHEMA [None]
